FAERS Safety Report 4465742-0 (Version None)
Quarter: 2004Q3

REPORT INFORMATION
  Report Type: 
  Country: None (occurrence: None)
  Receive Date: 20040928
  Receipt Date: 20040928
  Transmission Date: 20050211
  Serious: Yes (Other)
  Sender: FDA-Public Use
  Company Number: None

PATIENT
  Age: 69 Year
  Sex: Male
  Weight: 62.3 kg

DRUGS (23)
  1. OXALIPLATIN [Suspect]
     Dosage: 135 MG/M2IV PIGGY
     Route: 042
  2. GOSERELIN ACETATE [Concomitant]
  3. FLUNISOLIDE [Concomitant]
  4. TERAZOSIN HCL [Concomitant]
  5. NITROGLYCERIN (ETHEX) [Concomitant]
  6. ALBUTEROL [Concomitant]
  7. RANITIDINE HCL [Concomitant]
  8. POTASSIUM CHLORIDE [Concomitant]
  9. ISOSORBIDE MONONITRATE [Concomitant]
  10. LISINOPRIL [Concomitant]
  11. MEGESTROL ACETATE [Concomitant]
  12. SIMVASTATIN [Concomitant]
  13. CAPECITABINE [Concomitant]
  14. OXYCODONE HCL [Concomitant]
  15. BISACODYL [Concomitant]
  16. DOCUSATE NA [Concomitant]
  17. OXYCODONE HCL [Concomitant]
  18. TRAZODONE HCL [Concomitant]
  19. DEXAMETHASONE [Concomitant]
  20. ONDANSETRON [Concomitant]
  21. OXALIPLATIN [Concomitant]
  22. ZOLEDRONIC ACID [Concomitant]
  23. . [Concomitant]

REACTIONS (1)
  - NEUROPATHY [None]
